FAERS Safety Report 9914610 (Version 3)
Quarter: 2014Q1

REPORT INFORMATION
  Report Type: Report from Study
  Country: US (occurrence: US)
  Receive Date: 20140220
  Receipt Date: 20140303
  Transmission Date: 20141002
  Serious: Yes (Hospitalization)
  Sender: FDA-Public Use
  Company Number: US-TEVA-463612USA

PATIENT
  Age: 70 Year
  Sex: Male
  Weight: 81.6 kg

DRUGS (21)
  1. BENDAMUSTINE [Suspect]
     Indication: MANTLE CELL LYMPHOMA
     Dosage: CYCLIC
     Route: 042
     Dates: start: 20140131
  2. RITUXIMAB [Suspect]
     Indication: MANTLE CELL LYMPHOMA
     Dosage: TOTAL DOSE
     Route: 042
     Dates: start: 20140131
  3. RITUXIMAB [Suspect]
     Indication: MANTLE CELL LYMPHOMA
     Dosage: TOTAL DOSE
     Route: 042
     Dates: start: 20140201
  4. IBRUTINIB/PLACEBO [Suspect]
     Dates: end: 20140206
  5. LORAZEPAM [Concomitant]
     Indication: PREMEDICATION
     Dosage: AS NECESSARY
     Route: 048
     Dates: start: 20140201
  6. CYANOCOBALAMIN [Concomitant]
     Indication: ANAEMIA
     Route: 048
     Dates: start: 20140201
  7. GLIPIZIDE [Concomitant]
     Indication: DIABETES MELLITUS
     Route: 048
     Dates: start: 20140202
  8. ACETAMINOPHEN [Concomitant]
     Indication: PREMEDICATION
     Dosage: TOTAL DOSE
     Route: 048
     Dates: start: 20140131
  9. ACETAMINOPHEN [Concomitant]
     Indication: PREMEDICATION
     Dosage: TOTAL DOSE
     Route: 048
     Dates: start: 20140201
  10. LISINOPRIL [Concomitant]
     Indication: HYPERTENSION
     Dosage: UNKNOWN/D
     Route: 048
  11. MESALAMINE [Concomitant]
     Indication: COLITIS ULCERATIVE
     Route: 048
  12. OMEPRAZOLE [Concomitant]
     Indication: GASTROOESOPHAGEAL REFLUX DISEASE
     Route: 048
  13. SIMVASTATIN [Concomitant]
     Indication: HYPERLIPIDAEMIA
     Route: 048
  14. METFORMIN [Concomitant]
     Indication: DIABETES MELLITUS
     Route: 048
  15. ONDANSETRON [Concomitant]
     Indication: NAUSEA
  16. ONDANSETRON [Concomitant]
     Indication: VOMITING
  17. ENOXAPARIN SODIUM [Concomitant]
     Indication: THROMBOSIS PROPHYLAXIS
     Dosage: 40 MILLIGRAM DAILY;
     Route: 058
     Dates: start: 20140206
  18. FAMOTIDINE [Concomitant]
     Indication: GASTROOESOPHAGEAL REFLUX DISEASE
     Dosage: 40 MILLIGRAM DAILY;
     Route: 042
     Dates: start: 20140206
  19. FUROSEMIDE [Concomitant]
     Indication: OEDEMA PERIPHERAL
     Dosage: AS NECESSARY
     Route: 042
     Dates: start: 20140210
  20. MAGNESIUM SULFATE [Concomitant]
     Indication: HYPOMAGNESAEMIA
     Dosage: AS NECESSARY
     Route: 042
     Dates: start: 20140211
  21. MIRTAZAPINE [Concomitant]
     Indication: DECREASED APPETITE
     Dosage: 7.5 MILLIGRAM DAILY;
     Route: 048
     Dates: start: 20140217

REACTIONS (1)
  - Listeriosis [Recovered/Resolved]
